FAERS Safety Report 14480633 (Version 2)
Quarter: 2018Q2

REPORT INFORMATION
  Report Type: Spontaneous
  Country: IT (occurrence: IT)
  Receive Date: 20180202
  Receipt Date: 20180418
  Transmission Date: 20180711
  Serious: Yes (Other)
  Sender: FDA-Public Use
  Company Number: PHHY2018IT012999

PATIENT
  Age: 65 Year
  Sex: Female

DRUGS (1)
  1. VALPROATE SODIUM. [Suspect]
     Active Substance: VALPROATE SODIUM
     Indication: PRODUCT USED FOR UNKNOWN INDICATION
     Dosage: 800 MG, QD
     Route: 065

REACTIONS (6)
  - Somnolence [Recovering/Resolving]
  - Gait disturbance [Recovering/Resolving]
  - Encephalopathy [Recovering/Resolving]
  - Gaze palsy [Recovering/Resolving]
  - Asthenia [Recovering/Resolving]
  - Neurological decompensation [Recovering/Resolving]
